FAERS Safety Report 15603767 (Version 2)
Quarter: 2019Q2

REPORT INFORMATION
  Report Type: Report from Study
  Country: US (occurrence: US)
  Receive Date: 20181109
  Receipt Date: 20190502
  Transmission Date: 20190711
  Serious: Yes (Hospitalization, Other)
  Sender: FDA-Public Use
  Company Number: US-APOPHARMA-2018AP024007

PATIENT
  Age: 23 Year
  Sex: Female
  Weight: 51 kg

DRUGS (11)
  1. DEFEROXAMINE [Concomitant]
     Active Substance: DEFEROXAMINE\DEFEROXAMINE MESYLATE
     Indication: THALASSAEMIA BETA
     Dosage: 16 MG, OTHER
     Route: 058
     Dates: start: 2016
  2. MULTIPLE VITAMINS [Concomitant]
     Active Substance: VITAMINS
     Indication: PRODUCT USED FOR UNKNOWN INDICATION
     Route: 065
  3. FERRIPROX [Suspect]
     Active Substance: DEFERIPRONE
     Indication: THALASSAEMIA
     Dosage: 29 MG/KG, TID
     Route: 048
     Dates: start: 20141114, end: 20150212
  4. FERRIPROX [Suspect]
     Active Substance: DEFERIPRONE
     Dosage: 1000 MG, OTHER
     Route: 048
     Dates: start: 20181002, end: 20181012
  5. FERRIPROX [Suspect]
     Active Substance: DEFERIPRONE
     Dosage: 500 MG, OTHER
     Route: 048
     Dates: start: 20181015, end: 20181020
  6. VITAMIN D                          /00107901/ [Concomitant]
     Active Substance: ERGOCALCIFEROL
     Indication: PRODUCT USED FOR UNKNOWN INDICATION
     Route: 048
  7. FERRIPROX [Suspect]
     Active Substance: DEFERIPRONE
     Indication: HAEMOCHROMATOSIS
     Dosage: 29 MG/KG, TID
     Route: 048
     Dates: start: 20150406
  8. VITAMIN B COMPLEX [Concomitant]
     Active Substance: CYANOCOBALAMIN\DEXPANTHENOL\NIACINAMIDE\PYRIDOXINE HYDROCHLORIDE\RIBOFLAVIN 5^-PHOSPHATE SODIUM\THIAMINE HYDROCHLORIDE\VITAMIN B COMPLEX
     Indication: PRODUCT USED FOR UNKNOWN INDICATION
     Dosage: UNK
     Route: 048
     Dates: start: 20160501
  9. JADENU [Concomitant]
     Active Substance: DEFERASIROX
     Indication: THALASSAEMIA BETA
     Dosage: 720 MG, BID
     Route: 048
     Dates: start: 2016
  10. LUSPATERCEPT. [Concomitant]
     Active Substance: LUSPATERCEPT
     Indication: PRODUCT USED FOR UNKNOWN INDICATION
     Dosage: 63.75 MG, Q.3W
     Route: 058
     Dates: start: 20170414
  11. FOLIC ACID. [Concomitant]
     Active Substance: FOLIC ACID
     Indication: PRODUCT USED FOR UNKNOWN INDICATION
     Dosage: 1 UNK, UNK
     Route: 048
     Dates: start: 20160501

REACTIONS (10)
  - Ear pain [Unknown]
  - Pyrexia [Unknown]
  - Peritonsillitis [Unknown]
  - Fatigue [Unknown]
  - Cough [Unknown]
  - Constipation [Unknown]
  - Agranulocytosis [Recovered/Resolved]
  - Tachycardia [Unknown]
  - Oropharyngeal pain [Unknown]
  - Dizziness [Unknown]

NARRATIVE: CASE EVENT DATE: 201810
